FAERS Safety Report 6191783-1 (Version None)
Quarter: 2009Q2

REPORT INFORMATION
  Report Type: 
  Country: None (occurrence: None)
  Receive Date: 20090515
  Receipt Date: 20090421
  Transmission Date: 20091009
  Serious: Yes (Other)
  Sender: FDA-Public Use
  Company Number: PHHY2009JP14233

PATIENT
  Age: 77 Year
  Sex: Female

DRUGS (3)
  1. SANDOSTATIN LAR [Suspect]
     Indication: ACROMEGALY
     Dosage: UNK
     Route: 030
     Dates: start: 20040101
  2. PARLODEL [Suspect]
     Indication: ACROMEGALY
     Route: 048
  3. SANDOSTATIN [Suspect]
     Indication: ACROMEGALY
     Dosage: UNK
     Dates: start: 20040101

REACTIONS (5)
  - BILE DUCT STONE [None]
  - BLOOD ALKALINE PHOSPHATASE INCREASED [None]
  - BLOOD CALCIUM INCREASED [None]
  - BLOOD GROWTH HORMONE ABNORMAL [None]
  - PITUITARY TUMOUR [None]
